FAERS Safety Report 5352961-4 (Version None)
Quarter: 2007Q2

REPORT INFORMATION
  Report Type: 
  Country: None (occurrence: None)
  Receive Date: 20070611
  Receipt Date: 20070608
  Transmission Date: 20071010
  Serious: Yes (Other)
  Sender: FDA-Public Use
  Company Number: US-GENENTECH-238325

PATIENT
  Age: 67 Year
  Sex: Male

DRUGS (9)
  1. RITUXAN [Suspect]
     Indication: LYMPHOMA
     Dates: start: 20061106
  2. DOXORUBICIN HCL [Suspect]
     Indication: LYMPHOMA
     Dates: start: 20061106
  3. CYCLOPHOSPHAMIDE [Concomitant]
     Indication: LYMPHOMA
     Dates: start: 20061106
  4. METHOTREXATE [Concomitant]
     Indication: LYMPHOMA
     Dates: start: 20061106
  5. VINCRISTINE [Concomitant]
     Indication: LYMPHOMA
     Dates: start: 20061106
  6. DEXAMETHASONE 0.5MG TAB [Concomitant]
     Indication: LYMPHOMA
     Dates: start: 20061106
  7. CYTARABINE [Concomitant]
     Indication: LYMPHOMA
     Dates: start: 20061106
  8. LEUCOVORIN CALCIUM [Concomitant]
     Indication: LYMPHOMA
     Dates: start: 20061106
  9. SODIUM BICARBONATE [Concomitant]
     Indication: LYMPHOMA
     Dates: start: 20061106

REACTIONS (2)
  - EJECTION FRACTION DECREASED [None]
  - WEIGHT INCREASED [None]
